FAERS Safety Report 7509921-4 (Version None)
Quarter: 2011Q2

REPORT INFORMATION
  Report Type: 
  Country: None (occurrence: None)
  Receive Date: 20110527
  Receipt Date: 20110516
  Transmission Date: 20111010
  Serious: Yes (Other)
  Sender: FDA-Public Use
  Company Number: -MYLANLABS-2011S1009966

PATIENT
  Sex: Female

DRUGS (1)
  1. TAMOXIFEN CITRATE [Suspect]
     Indication: PRODUCT USED FOR UNKNOWN INDICATION

REACTIONS (4)
  - CHOLECYSTITIS [None]
  - CATARACT [None]
  - MENSTRUATION IRREGULAR [None]
  - VISUAL ACUITY REDUCED [None]
